FAERS Safety Report 25984137 (Version 1)
Quarter: 2025Q4

REPORT INFORMATION
  Report Type: Spontaneous
  Country: GB (occurrence: GB)
  Receive Date: 20251031
  Receipt Date: 20251031
  Transmission Date: 20260118
  Serious: Yes (Other)
  Sender: MYLAN
  Company Number: GB-MHRA-TPP20032820C9724756YC1761230304701

PATIENT
  Age: 71 Year
  Sex: Male
  Weight: 68 kg

DRUGS (52)
  1. ATORVASTATIN [Suspect]
     Active Substance: ATORVASTATIN
     Indication: Ill-defined disorder
     Dosage: 20 MILLIGRAM, QD
     Dates: start: 20250927
  2. ATORVASTATIN [Suspect]
     Active Substance: ATORVASTATIN
     Dosage: 20 MILLIGRAM, QD
     Route: 065
     Dates: start: 20250927
  3. ATORVASTATIN [Suspect]
     Active Substance: ATORVASTATIN
     Dosage: 20 MILLIGRAM, QD
     Route: 065
     Dates: start: 20250927
  4. ATORVASTATIN [Suspect]
     Active Substance: ATORVASTATIN
     Dosage: 20 MILLIGRAM, QD
     Dates: start: 20250927
  5. Aquamax [Concomitant]
     Indication: Ill-defined disorder
     Dosage: UNK, PRN (ADULTS + CHILDREN.  APPLY AS REQUIRED)
     Dates: start: 20240730, end: 20250930
  6. Aquamax [Concomitant]
     Dosage: UNK, PRN (ADULTS + CHILDREN.  APPLY AS REQUIRED)
     Route: 065
     Dates: start: 20240730, end: 20250930
  7. Aquamax [Concomitant]
     Dosage: UNK, PRN (ADULTS + CHILDREN.  APPLY AS REQUIRED)
     Route: 065
     Dates: start: 20240730, end: 20250930
  8. Aquamax [Concomitant]
     Dosage: UNK, PRN (ADULTS + CHILDREN.  APPLY AS REQUIRED)
     Dates: start: 20240730, end: 20250930
  9. BECLOMETHASONE DIPROPIONATE [Concomitant]
     Active Substance: BECLOMETHASONE DIPROPIONATE
     Indication: Ill-defined disorder
     Dosage: 2 DOSAGE FORM, BID (TWO PUFFS TWICE DAILY TO EACH NOSTRIL)
     Dates: start: 20240730
  10. BECLOMETHASONE DIPROPIONATE [Concomitant]
     Active Substance: BECLOMETHASONE DIPROPIONATE
     Dosage: 2 DOSAGE FORM, BID (TWO PUFFS TWICE DAILY TO EACH NOSTRIL)
     Route: 045
     Dates: start: 20240730
  11. BECLOMETHASONE DIPROPIONATE [Concomitant]
     Active Substance: BECLOMETHASONE DIPROPIONATE
     Dosage: 2 DOSAGE FORM, BID (TWO PUFFS TWICE DAILY TO EACH NOSTRIL)
     Route: 045
     Dates: start: 20240730
  12. BECLOMETHASONE DIPROPIONATE [Concomitant]
     Active Substance: BECLOMETHASONE DIPROPIONATE
     Dosage: 2 DOSAGE FORM, BID (TWO PUFFS TWICE DAILY TO EACH NOSTRIL)
     Dates: start: 20240730
  13. ESOMEPRAZOLE [Concomitant]
     Active Substance: ESOMEPRAZOLE
     Indication: Ill-defined disorder
     Dosage: 1 DOSAGE FORM, QD (TAKE ONE DAILY)
     Dates: start: 20240730
  14. ESOMEPRAZOLE [Concomitant]
     Active Substance: ESOMEPRAZOLE
     Dosage: 1 DOSAGE FORM, QD (TAKE ONE DAILY)
     Route: 065
     Dates: start: 20240730
  15. ESOMEPRAZOLE [Concomitant]
     Active Substance: ESOMEPRAZOLE
     Dosage: 1 DOSAGE FORM, QD (TAKE ONE DAILY)
     Route: 065
     Dates: start: 20240730
  16. ESOMEPRAZOLE [Concomitant]
     Active Substance: ESOMEPRAZOLE
     Dosage: 1 DOSAGE FORM, QD (TAKE ONE DAILY)
     Dates: start: 20240730
  17. GLICLAZIDE [Concomitant]
     Active Substance: GLICLAZIDE
     Indication: Ill-defined disorder
     Dosage: 1 DOSAGE FORM, AM (TAKE ONE WITH BREAKFAST)
     Dates: start: 20240730
  18. GLICLAZIDE [Concomitant]
     Active Substance: GLICLAZIDE
     Dosage: 1 DOSAGE FORM, AM (TAKE ONE WITH BREAKFAST)
     Route: 065
     Dates: start: 20240730
  19. GLICLAZIDE [Concomitant]
     Active Substance: GLICLAZIDE
     Dosage: 1 DOSAGE FORM, AM (TAKE ONE WITH BREAKFAST)
     Route: 065
     Dates: start: 20240730
  20. GLICLAZIDE [Concomitant]
     Active Substance: GLICLAZIDE
     Dosage: 1 DOSAGE FORM, AM (TAKE ONE WITH BREAKFAST)
     Dates: start: 20240730
  21. LEVOTHYROXINE [Concomitant]
     Active Substance: LEVOTHYROXINE
     Indication: Ill-defined disorder
     Dosage: UNK (TAKE 2 TABLETS ONE DAY AND 3 TABLETS THE NEXT DAY)
  22. LEVOTHYROXINE [Concomitant]
     Active Substance: LEVOTHYROXINE
     Dosage: UNK (TAKE 2 TABLETS ONE DAY AND 3 TABLETS THE NEXT DAY)
     Route: 065
  23. LEVOTHYROXINE [Concomitant]
     Active Substance: LEVOTHYROXINE
     Dosage: UNK (TAKE 2 TABLETS ONE DAY AND 3 TABLETS THE NEXT DAY)
     Route: 065
  24. LEVOTHYROXINE [Concomitant]
     Active Substance: LEVOTHYROXINE
     Dosage: UNK (TAKE 2 TABLETS ONE DAY AND 3 TABLETS THE NEXT DAY)
  25. METFORMIN [Concomitant]
     Active Substance: METFORMIN HYDROCHLORIDE
     Indication: Ill-defined disorder
     Dosage: 2 DOSAGE FORM, BID (TAKE TWO TABLETS TWICE DAILY)
     Dates: start: 20240730
  26. METFORMIN [Concomitant]
     Active Substance: METFORMIN HYDROCHLORIDE
     Dosage: 2 DOSAGE FORM, BID (TAKE TWO TABLETS TWICE DAILY)
     Route: 065
     Dates: start: 20240730
  27. METFORMIN [Concomitant]
     Active Substance: METFORMIN HYDROCHLORIDE
     Dosage: 2 DOSAGE FORM, BID (TAKE TWO TABLETS TWICE DAILY)
     Route: 065
     Dates: start: 20240730
  28. METFORMIN [Concomitant]
     Active Substance: METFORMIN HYDROCHLORIDE
     Dosage: 2 DOSAGE FORM, BID (TAKE TWO TABLETS TWICE DAILY)
     Dates: start: 20240730
  29. RAMIPRIL [Concomitant]
     Active Substance: RAMIPRIL
     Indication: Ill-defined disorder
     Dosage: 1 DOSAGE FORM, QD (TAKE ONE DAILY)
     Dates: start: 20240730
  30. RAMIPRIL [Concomitant]
     Active Substance: RAMIPRIL
     Dosage: 1 DOSAGE FORM, QD (TAKE ONE DAILY)
     Route: 065
     Dates: start: 20240730
  31. RAMIPRIL [Concomitant]
     Active Substance: RAMIPRIL
     Dosage: 1 DOSAGE FORM, QD (TAKE ONE DAILY)
     Route: 065
     Dates: start: 20240730
  32. RAMIPRIL [Concomitant]
     Active Substance: RAMIPRIL
     Dosage: 1 DOSAGE FORM, QD (TAKE ONE DAILY)
     Dates: start: 20240730
  33. HYDROXOCOBALAMIN [Concomitant]
     Active Substance: HYDROXOCOBALAMIN
     Indication: Ill-defined disorder
     Dosage: 1 MILLIGRAM, 3XW (1 MG THREE TIMES WEEKLY FOR 2 WEEKS THEN 3 MNO...)
     Dates: start: 20240904
  34. HYDROXOCOBALAMIN [Concomitant]
     Active Substance: HYDROXOCOBALAMIN
     Dosage: 1 MILLIGRAM, 3XW (1 MG THREE TIMES WEEKLY FOR 2 WEEKS THEN 3 MNO...)
     Route: 065
     Dates: start: 20240904
  35. HYDROXOCOBALAMIN [Concomitant]
     Active Substance: HYDROXOCOBALAMIN
     Dosage: 1 MILLIGRAM, 3XW (1 MG THREE TIMES WEEKLY FOR 2 WEEKS THEN 3 MNO...)
     Route: 065
     Dates: start: 20240904
  36. HYDROXOCOBALAMIN [Concomitant]
     Active Substance: HYDROXOCOBALAMIN
     Dosage: 1 MILLIGRAM, 3XW (1 MG THREE TIMES WEEKLY FOR 2 WEEKS THEN 3 MNO...)
     Dates: start: 20240904
  37. GAVISCON [Concomitant]
     Active Substance: ALUMINUM HYDROXIDE\MAGNESIUM CARBONATE
     Indication: Ill-defined disorder
     Dosage: UNK, PM (10ML-20ML AT NIGHT AS PHYSICAL BARRIER)
     Dates: start: 20241101
  38. GAVISCON [Concomitant]
     Active Substance: ALUMINUM HYDROXIDE\MAGNESIUM CARBONATE
     Dosage: UNK, PM (10ML-20ML AT NIGHT AS PHYSICAL BARRIER)
     Route: 065
     Dates: start: 20241101
  39. GAVISCON [Concomitant]
     Active Substance: ALUMINUM HYDROXIDE\MAGNESIUM CARBONATE
     Dosage: UNK, PM (10ML-20ML AT NIGHT AS PHYSICAL BARRIER)
     Route: 065
     Dates: start: 20241101
  40. GAVISCON [Concomitant]
     Active Substance: ALUMINUM HYDROXIDE\MAGNESIUM CARBONATE
     Dosage: UNK, PM (10ML-20ML AT NIGHT AS PHYSICAL BARRIER)
     Dates: start: 20241101
  41. NIACINAMIDE\PYRIDOXINE HYDROCHLORIDE\RIBOFLAVIN\THIAMINE HYDROCHLORIDE [Concomitant]
     Active Substance: NIACINAMIDE\PYRIDOXINE HYDROCHLORIDE\RIBOFLAVIN\THIAMINE HYDROCHLORIDE
     Indication: Ill-defined disorder
     Dosage: 1 DOSAGE FORM, TID (TAKE 1 , 3 TIMES/DAY)
     Dates: start: 20250113
  42. NIACINAMIDE\PYRIDOXINE HYDROCHLORIDE\RIBOFLAVIN\THIAMINE HYDROCHLORIDE [Concomitant]
     Active Substance: NIACINAMIDE\PYRIDOXINE HYDROCHLORIDE\RIBOFLAVIN\THIAMINE HYDROCHLORIDE
     Dosage: 1 DOSAGE FORM, TID (TAKE 1 , 3 TIMES/DAY)
     Route: 065
     Dates: start: 20250113
  43. NIACINAMIDE\PYRIDOXINE HYDROCHLORIDE\RIBOFLAVIN\THIAMINE HYDROCHLORIDE [Concomitant]
     Active Substance: NIACINAMIDE\PYRIDOXINE HYDROCHLORIDE\RIBOFLAVIN\THIAMINE HYDROCHLORIDE
     Dosage: 1 DOSAGE FORM, TID (TAKE 1 , 3 TIMES/DAY)
     Route: 065
     Dates: start: 20250113
  44. NIACINAMIDE\PYRIDOXINE HYDROCHLORIDE\RIBOFLAVIN\THIAMINE HYDROCHLORIDE [Concomitant]
     Active Substance: NIACINAMIDE\PYRIDOXINE HYDROCHLORIDE\RIBOFLAVIN\THIAMINE HYDROCHLORIDE
     Dosage: 1 DOSAGE FORM, TID (TAKE 1 , 3 TIMES/DAY)
     Dates: start: 20250113
  45. CETIRIZINE [Concomitant]
     Active Substance: CETIRIZINE HYDROCHLORIDE
     Indication: Ill-defined disorder
     Dosage: UNK (TAKE ONCE OR TWICE DAILY)
  46. CETIRIZINE [Concomitant]
     Active Substance: CETIRIZINE HYDROCHLORIDE
     Dosage: UNK (TAKE ONCE OR TWICE DAILY)
     Route: 065
  47. CETIRIZINE [Concomitant]
     Active Substance: CETIRIZINE HYDROCHLORIDE
     Dosage: UNK (TAKE ONCE OR TWICE DAILY)
     Route: 065
  48. CETIRIZINE [Concomitant]
     Active Substance: CETIRIZINE HYDROCHLORIDE
     Dosage: UNK (TAKE ONCE OR TWICE DAILY)
  49. DICLOFENAC DIETHYLAMINE [Concomitant]
     Active Substance: DICLOFENAC DIETHYLAMINE
     Indication: Ill-defined disorder
     Dosage: UNK (APPLY 3 - 4 TIMES/DAY)
  50. DICLOFENAC DIETHYLAMINE [Concomitant]
     Active Substance: DICLOFENAC DIETHYLAMINE
     Dosage: UNK (APPLY 3 - 4 TIMES/DAY)
     Route: 065
  51. DICLOFENAC DIETHYLAMINE [Concomitant]
     Active Substance: DICLOFENAC DIETHYLAMINE
     Dosage: UNK (APPLY 3 - 4 TIMES/DAY)
     Route: 065
  52. DICLOFENAC DIETHYLAMINE [Concomitant]
     Active Substance: DICLOFENAC DIETHYLAMINE
     Dosage: UNK (APPLY 3 - 4 TIMES/DAY)

REACTIONS (3)
  - Back pain [Recovering/Resolving]
  - Myalgia [Recovering/Resolving]
  - Neck pain [Recovering/Resolving]
